FAERS Safety Report 19089729 (Version 1)
Quarter: 2021Q2

REPORT INFORMATION
  Report Type: Report from Study
  Country: GB (occurrence: GB)
  Receive Date: 20210403
  Receipt Date: 20210403
  Transmission Date: 20210717
  Serious: Yes (Other)
  Sender: FDA-Public Use
  Company Number: GB-TEVA-2021-GB-1896089

PATIENT
  Sex: Male

DRUGS (4)
  1. EMTRICITABINE AND TENOFOVIR [Suspect]
     Active Substance: EMTRICITABINE\TENOFOVIR
     Indication: PRODUCT USED FOR UNKNOWN INDICATION
     Dosage: 1 DOSAGE FORMS DAILY; 1 DOSAGE FORM, QD; 200/10M
     Route: 050
  2. RITONAVIR. [Suspect]
     Active Substance: RITONAVIR
     Indication: PRODUCT USED FOR UNKNOWN INDICATION
     Dosage: 1 DOSAGE FORMS DAILY; 1 DOSAGE FORM, QD
     Route: 048
  3. EMTRICITABINE [Suspect]
     Active Substance: EMTRICITABINE
     Indication: PRODUCT USED FOR UNKNOWN INDICATION
     Route: 048
  4. ATAZANAVIR. [Suspect]
     Active Substance: ATAZANAVIR
     Indication: PRODUCT USED FOR UNKNOWN INDICATION
     Dosage: 1 DOSAGE FORMS DAILY; 1 DOSAGE FORM, QD
     Route: 050

REACTIONS (1)
  - Neoplasm malignant [Unknown]
